FAERS Safety Report 9454329 (Version 1)
Quarter: 2013Q3

REPORT INFORMATION
  Report Type: Spontaneous
  Country: US (occurrence: US)
  Receive Date: 20130812
  Receipt Date: 20130812
  Transmission Date: 20140515
  Serious: Yes (Other)
  Sender: FDA-Public Use
  Company Number: PHEH2013US016860

PATIENT
  Sex: 0

DRUGS (2)
  1. TRILEPTAL [Suspect]
     Dosage: UNK UKN, UNK
  2. VIMPAT [Suspect]
     Dosage: UNK UKN, UNK

REACTIONS (9)
  - Convulsion [Unknown]
  - Aphasia [Unknown]
  - Memory impairment [Unknown]
  - Coprolalia [Unknown]
  - Decreased appetite [Unknown]
  - Dyspnoea [Unknown]
  - Mental impairment [Unknown]
  - Somnolence [Unknown]
  - Headache [Unknown]
